FAERS Safety Report 8314381-X (Version None)
Quarter: 2012Q2

REPORT INFORMATION
  Report Type: 
  Country: None (occurrence: None)
  Receive Date: 20120426
  Receipt Date: 20120308
  Transmission Date: 20120825
  Serious: Yes (Hospitalization)
  Sender: FDA-Public Use
  Company Number: DE-ROCHE-1047097

PATIENT
  Sex: Male

DRUGS (14)
  1. AMLODIPINE [Concomitant]
     Dates: start: 20120207
  2. LYRICA [Concomitant]
     Dates: start: 20120207
  3. CYCLOPHOSPHAMIDE [Suspect]
     Indication: MALIGNANT LYMPHOID NEOPLASM
     Dosage: DATE OF LAST DOSE PRIOR TO SAE: 28/FEB/2012
     Route: 042
     Dates: start: 20120214
  4. CARBAMAZEPINE [Concomitant]
     Route: 048
     Dates: start: 20120207
  5. TRIMIPRAMINE MALEATE [Concomitant]
     Route: 048
     Dates: start: 20120207
  6. NEULASTA [Suspect]
     Indication: MALIGNANT LYMPHOID NEOPLASM
     Dosage: DOSE: 1 FS, DATE OF LAST DOSE PRIOR TO SAE: 28/FEB/2012
     Route: 058
     Dates: start: 20120217
  7. METOPROLOL TARTRATE [Concomitant]
     Indication: HYPERTENSION
     Route: 048
     Dates: start: 20120207
  8. PREDNISOLONE [Suspect]
     Indication: MALIGNANT LYMPHOID NEOPLASM
     Dosage: DATE OF LAST DOSE PRIOR TO SAE: 28/FEB/2012
     Route: 065
     Dates: start: 20120214, end: 20120218
  9. MABTHERA [Suspect]
     Indication: MALIGNANT LYMPHOID NEOPLASM
     Dosage: DATE OF LAST DOSE PRIOR TO SAE: 27/FEB/2012
     Route: 042
     Dates: start: 20120213
  10. VINCRISTINE [Suspect]
     Indication: MALIGNANT LYMPHOID NEOPLASM
     Dosage: DATE OF LAST DOSE PRIOR TO SAE: 28/FEB/2012
     Route: 042
     Dates: start: 20120214
  11. ATACAND [Concomitant]
     Indication: HYPERTENSION
     Route: 048
     Dates: start: 20120207
  12. DOXORUBICIN HCL [Suspect]
     Indication: MALIGNANT LYMPHOID NEOPLASM
     Dosage: DATE OF LAST DOSE PRIOR TO SAE: 28/FEB/2012
     Route: 042
     Dates: start: 20120214
  13. HYDROCHLOROTHIAZIDE [Concomitant]
     Indication: HYPERTENSION
     Route: 048
     Dates: start: 20120207
  14. OXYBUTYNIN [Concomitant]
     Dates: start: 20120207

REACTIONS (1)
  - THROMBOPHLEBITIS SUPERFICIAL [None]
